FAERS Safety Report 4589995-3 (Version None)
Quarter: 2005Q1

REPORT INFORMATION
  Report Type: 
  Country: None (occurrence: None)
  Receive Date: 20050125
  Receipt Date: 20041011
  Transmission Date: 20050727
  Serious: No
  Sender: FDA-Public Use
  Company Number: USA040772948

PATIENT
  Age: 74 Year
  Sex: Female
  Weight: 57 kg

DRUGS (4)
  1. FORTEO [Suspect]
     Indication: OSTEOPOROSIS
     Dosage: 20 UG/1 DAY
     Dates: start: 20040401
  2. CALTRATE (CALCIUM CARBONATE) [Concomitant]
  3. MOEXIPRIL HCL [Concomitant]
  4. SINGULAIR (MONTELUKAST) [Concomitant]

REACTIONS (11)
  - ABNORMAL FAECES [None]
  - BUTTOCK PAIN [None]
  - CIRCADIAN RHYTHM SLEEP DISORDER [None]
  - DYSPHAGIA [None]
  - MUSCLE SPASMS [None]
  - NASOPHARYNGITIS [None]
  - NIGHT CRAMPS [None]
  - OESOPHAGEAL DISORDER [None]
  - OESOPHAGEAL STENOSIS [None]
  - PAIN [None]
  - VIRAL INFECTION [None]
